FAERS Safety Report 11255903 (Version 2)
Quarter: 2015Q3

REPORT INFORMATION
  Report Type: Spontaneous
  Country: IN (occurrence: IN)
  Receive Date: 20150709
  Receipt Date: 20150721
  Transmission Date: 20151125
  Serious: Yes (Other)
  Sender: FDA-Public Use
  Company Number: IN-AUROBINDO-AUR-APL-2015-05655

PATIENT
  Age: 72 Year
  Sex: Male

DRUGS (3)
  1. POTASSIUM IODIDE [Suspect]
     Active Substance: POTASSIUM IODIDE
     Indication: PHAEHYPHOMYCOSIS
     Dosage: UNK
     Route: 065
  2. TERBINAFINE 250MG [Suspect]
     Active Substance: TERBINAFINE
     Indication: PHAEHYPHOMYCOSIS
     Dosage: 250 MG, DAILY
     Route: 065
  3. ITRACONAZOLE. [Suspect]
     Active Substance: ITRACONAZOLE
     Indication: PHAEHYPHOMYCOSIS
     Dosage: 200 MG, TWO TIMES A DAY
     Route: 065

REACTIONS (5)
  - Influenza like illness [Recovered/Resolved]
  - Scab [Recovering/Resolving]
  - Renal impairment [Recovering/Resolving]
  - Peripheral swelling [Recovering/Resolving]
  - Erythema [Recovering/Resolving]
